FAERS Safety Report 23513504 (Version 2)
Quarter: 2024Q1

REPORT INFORMATION
  Report Type: Spontaneous
  Country: US (occurrence: US)
  Receive Date: 20240212
  Receipt Date: 20240228
  Transmission Date: 20240410
  Serious: Yes (Life-Threatening, Other)
  Sender: FDA-Public Use
  Company Number: US-ACS-20240040

PATIENT
  Age: 49 Year
  Sex: Female

DRUGS (6)
  1. CEFTRIAXONE [Suspect]
     Active Substance: CEFTRIAXONE\CEFTRIAXONE SODIUM
     Route: 042
     Dates: start: 20230206
  2. TORADOL [Concomitant]
     Active Substance: KETOROLAC TROMETHAMINE
     Indication: Pain
     Route: 042
     Dates: start: 20230602
  3. GUAIFENESIN [Concomitant]
     Active Substance: GUAIFENESIN
     Indication: Upper respiratory tract infection
     Route: 048
     Dates: start: 20230206
  4. TESSALON [Concomitant]
     Active Substance: BENZONATATE
     Indication: Upper respiratory tract infection
     Route: 048
     Dates: start: 20230206
  5. ZITHROMAX [Concomitant]
     Active Substance: AZITHROMYCIN DIHYDRATE
     Route: 048
     Dates: start: 20230206
  6. ASPIRIN [Concomitant]
     Active Substance: ASPIRIN
     Route: 048
     Dates: start: 20230206

REACTIONS (1)
  - Anaphylactic shock [Unknown]

NARRATIVE: CASE EVENT DATE: 20230206
